FAERS Safety Report 7218200-4 (Version None)
Quarter: 2011Q1

REPORT INFORMATION
  Report Type: 
  Country: None (occurrence: None)
  Receive Date: 20110110
  Receipt Date: 20101230
  Transmission Date: 20110831
  Serious: Yes (Other)
  Sender: FDA-Public Use
  Company Number: US-ASTRAZENECA-2010SE32684

PATIENT
  Age: 88 Year
  Sex: Female
  Weight: 56.7 kg

DRUGS (6)
  1. FISH OIL [Concomitant]
  2. EVISTA [Concomitant]
  3. NEXIUM [Suspect]
     Indication: GASTROOESOPHAGEAL REFLUX DISEASE
     Route: 048
  4. MULTI-VITAMIN [Concomitant]
  5. NEXIUM [Suspect]
     Route: 048
  6. CALCIUM [Concomitant]

REACTIONS (3)
  - LYMPHOMA [None]
  - ILL-DEFINED DISORDER [None]
  - DRUG DOSE OMISSION [None]
